FAERS Safety Report 16993479 (Version 1)
Quarter: 2019Q4

REPORT INFORMATION
  Report Type: Spontaneous
  Country: US (occurrence: US)
  Receive Date: 20191105
  Receipt Date: 20191105
  Transmission Date: 20200122
  Serious: No
  Sender: FDA-Public Use
  Company Number: US-ALVOGEN-2019-ALVOGEN-100059

PATIENT
  Age: 72 Year
  Sex: Male
  Weight: 97.07 kg

DRUGS (1)
  1. NIFEDIPINE. [Suspect]
     Active Substance: NIFEDIPINE
     Indication: PRODUCT USED FOR UNKNOWN INDICATION
     Dates: start: 1980

REACTIONS (2)
  - Chest pain [Recovered/Resolved]
  - Feeling jittery [Recovered/Resolved]
